FAERS Safety Report 9400047 (Version 2)
Quarter: 2013Q3

REPORT INFORMATION
  Report Type: Spontaneous
  Country: CA (occurrence: CA)
  Receive Date: 20130715
  Receipt Date: 20130809
  Transmission Date: 20140515
  Serious: Yes (Other)
  Sender: FDA-Public Use
  Company Number: CA-ASTELLAS-2013US007298

PATIENT
  Age: 11 Year
  Sex: Female

DRUGS (1)
  1. PROGRAF [Suspect]
     Indication: NEPHROTIC SYNDROME
     Dosage: UNK
     Route: 048
     Dates: start: 2008, end: 2009

REACTIONS (2)
  - Off label use [Unknown]
  - Nephrotic syndrome [Recovered/Resolved]
